FAERS Safety Report 23334787 (Version 1)
Quarter: 2023Q4

REPORT INFORMATION
  Report Type: Other
  Country: GB (occurrence: None)
  Receive Date: 20231224
  Receipt Date: 20231224
  Transmission Date: 20240109
  Serious: No
  Sender: FDA-Public Use
  Company Number: GB-ROCHE-3479521

PATIENT
  Age: 46 Year
  Sex: Male

DRUGS (12)
  1. OCRELIZUMAB [Suspect]
     Active Substance: OCRELIZUMAB
     Indication: Relapsing-remitting multiple sclerosis
     Dosage: SUBSEQUENT DOSES RECEIVED ON : 08-OCT-2019
     Route: 042
     Dates: start: 20190924
  2. OCRELIZUMAB [Suspect]
     Active Substance: OCRELIZUMAB
     Dosage: SUBSEQUENT DOSES RECEIVED ON: 08-JUN-2021, 27-MAY-2020, 21-JUN-2022, 14-DEC-2021
     Route: 042
     Dates: start: 20221219, end: 20221219
  3. OCRELIZUMAB [Suspect]
     Active Substance: OCRELIZUMAB
     Dosage: SUBSEQUENT DOSES RECEIVED ON : 07-DEC-2020, 19-DEC-2023
     Route: 042
     Dates: start: 20230620, end: 20230620
  4. DIMETHYL FUMARATE [Concomitant]
     Active Substance: DIMETHYL FUMARATE
     Dates: start: 20170201
  5. GABAPENTIN [Concomitant]
     Active Substance: GABAPENTIN
     Route: 048
  6. TEMAZEPAM [Concomitant]
     Active Substance: TEMAZEPAM
  7. PREGABALIN [Concomitant]
     Active Substance: PREGABALIN
     Route: 048
     Dates: start: 20211123
  8. LANSOPRAZOLE [Concomitant]
     Active Substance: LANSOPRAZOLE
     Route: 048
     Dates: start: 20211201
  9. PROMETHAZINE [Concomitant]
     Active Substance: PROMETHAZINE HYDROCHLORIDE
     Route: 048
     Dates: start: 20211123
  10. AMANTADINE [Concomitant]
     Active Substance: AMANTADINE
     Route: 048
  11. KETOCONAZOLE [Concomitant]
     Active Substance: KETOCONAZOLE
     Route: 061
  12. ACIKLOVIR [Concomitant]

REACTIONS (1)
  - COVID-19 [Recovered/Resolved]

NARRATIVE: CASE EVENT DATE: 20230901
